FAERS Safety Report 25428785 (Version 6)
Quarter: 2025Q4

REPORT INFORMATION
  Report Type: Spontaneous
  Country: JP (occurrence: JP)
  Receive Date: 20250612
  Receipt Date: 20251231
  Transmission Date: 20260118
  Serious: Yes (Death, Life-Threatening, Hospitalization, Other)
  Sender: AMGEN
  Company Number: JP-AMGEN-JPNSP2025110044

PATIENT
  Age: 77 Year
  Sex: Male
  Weight: 58 kg

DRUGS (24)
  1. IMDELLTRA [Suspect]
     Active Substance: TARLATAMAB-DLLE
     Indication: Small cell lung cancer recurrent
     Dosage: 1 MILLIGRAM, DRIP INFUSION
     Route: 040
     Dates: start: 20250602, end: 20250602
  2. FILGRASTIM [Suspect]
     Active Substance: FILGRASTIM
     Indication: Product used for unknown indication
     Dosage: UNK
     Route: 065
     Dates: start: 20241025, end: 20241027
  3. FILGRASTIM [Suspect]
     Active Substance: FILGRASTIM
     Dosage: UNK
     Route: 065
     Dates: start: 20250117, end: 20250119
  4. FILGRASTIM [Suspect]
     Active Substance: FILGRASTIM
     Dosage: UNK, DAY 10
     Route: 065
     Dates: start: 20250214, end: 20250216
  5. CALCIUM CARBONATE [Concomitant]
     Active Substance: CALCIUM CARBONATE
     Indication: Chronic kidney disease
     Dosage: 500 MILLIGRAM, BID
     Dates: start: 20220406, end: 20250603
  6. PREDNISOLONE [Concomitant]
     Active Substance: PREDNISOLONE
     Dosage: 30 MILLIGRAM, QD
     Dates: start: 202411
  7. ISONIAZID [Concomitant]
     Active Substance: ISONIAZID
     Dosage: 25 MILLIGRAM
     Route: 048
     Dates: start: 20241106, end: 20241108
  8. ISONIAZID [Concomitant]
     Active Substance: ISONIAZID
     Dosage: 50 MILLIGRAM
     Route: 048
     Dates: start: 20241109, end: 20241111
  9. ISONIAZID [Concomitant]
     Active Substance: ISONIAZID
     Dosage: 100 MILLIGRAM
     Route: 048
     Dates: start: 20241112, end: 20241114
  10. ISONIAZID [Concomitant]
     Active Substance: ISONIAZID
     Dosage: 200 MILLIGRAM
     Route: 048
     Dates: start: 20241115, end: 20241117
  11. ISONIAZID [Concomitant]
     Active Substance: ISONIAZID
     Dosage: 300 MILLIGRAM
     Route: 048
     Dates: start: 20241118, end: 20250318
  12. RIFAMPIN [Concomitant]
     Active Substance: RIFAMPIN
     Dosage: 25 MILLIGRAM
     Route: 048
     Dates: start: 20241106, end: 20241108
  13. RIFAMPIN [Concomitant]
     Active Substance: RIFAMPIN
     Dosage: 50 MILLIGRAM
     Route: 048
     Dates: start: 20241109, end: 20241111
  14. RIFAMPIN [Concomitant]
     Active Substance: RIFAMPIN
     Dosage: 100 MILLIGRAM
     Route: 048
     Dates: start: 20241112, end: 20241114
  15. RIFAMPIN [Concomitant]
     Active Substance: RIFAMPIN
     Dosage: 200 MILLIGRAM
     Route: 048
     Dates: start: 20241115, end: 20241117
  16. RIFAMPIN [Concomitant]
     Active Substance: RIFAMPIN
     Dosage: 300 MILLIGRAM
     Route: 048
     Dates: start: 20241118, end: 20250318
  17. CARBOPLATIN [Concomitant]
     Active Substance: CARBOPLATIN
     Indication: Small cell lung cancer
     Dosage: UNK, CYCLE 2
     Dates: start: 20241204, end: 2024
  18. CARBOPLATIN [Concomitant]
     Active Substance: CARBOPLATIN
     Dosage: UNK, CYCLE 3
     Dates: start: 20250108, end: 2025
  19. CARBOPLATIN [Concomitant]
     Active Substance: CARBOPLATIN
     Dosage: UNK, CYCLE 4
     Dates: start: 20250205
  20. ETOPOSIDE [Concomitant]
     Active Substance: ETOPOSIDE
     Indication: Small cell lung cancer
     Dosage: UNK, CYCLE 2
     Dates: start: 20241204, end: 2024
  21. ETOPOSIDE [Concomitant]
     Active Substance: ETOPOSIDE
     Dosage: UNK, CYCLE 3
     Dates: start: 20250108, end: 2025
  22. ETOPOSIDE [Concomitant]
     Active Substance: ETOPOSIDE
     Dosage: UNK, CYCLE 4
     Dates: start: 20250205
  23. AMRUBICIN [Concomitant]
     Active Substance: AMRUBICIN
     Indication: Small cell lung cancer
     Dosage: UNK, (SECOND-LINE) CYCLE 1
     Route: 065
     Dates: start: 20250305, end: 2025
  24. AMRUBICIN [Concomitant]
     Active Substance: AMRUBICIN
     Dosage: UNK,(SECOND-LINE) CYCLE 2 DAY 1
     Route: 065
     Dates: start: 20250402, end: 2025

REACTIONS (13)
  - Ventricular fibrillation [Fatal]
  - Cardiac arrest [Fatal]
  - Cytokine release syndrome [Not Recovered/Not Resolved]
  - Small cell lung cancer [Unknown]
  - Hyperkalaemia [Not Recovered/Not Resolved]
  - Metastases to central nervous system [Unknown]
  - Metastases to liver [Unknown]
  - Pneumonia bacterial [Unknown]
  - Hepatic function abnormal [Unknown]
  - Muscular weakness [Unknown]
  - White blood cell count decreased [Unknown]
  - COVID-19 [Unknown]
  - Pyrexia [Unknown]

NARRATIVE: CASE EVENT DATE: 20241026
